FAERS Safety Report 18346641 (Version 2)
Quarter: 2021Q2

REPORT INFORMATION
  Report Type: Spontaneous
  Country: US (occurrence: US)
  Receive Date: 20201006
  Receipt Date: 20210407
  Transmission Date: 20210717
  Serious: Yes (Other)
  Sender: FDA-Public Use
  Company Number: US-SA-2020SA272116

PATIENT
  Age: 62 Year
  Sex: Male

DRUGS (1)
  1. ZANTAC [Suspect]
     Active Substance: RANITIDINE HYDROCHLORIDE
     Dosage: UNK, QD
     Dates: start: 201001, end: 201904

REACTIONS (4)
  - Oesophageal carcinoma [Unknown]
  - Gastric cancer [Unknown]
  - Throat cancer [Unknown]
  - Nasal cavity cancer [Unknown]

NARRATIVE: CASE EVENT DATE: 201902
